FAERS Safety Report 10511555 (Version 2)
Quarter: 2015Q1

REPORT INFORMATION
  Report Type: Spontaneous
  Country: US (occurrence: US)
  Receive Date: 20141010
  Receipt Date: 20150320
  Transmission Date: 20150720
  Serious: Yes (Other)
  Sender: FDA-Public Use
  Company Number: US-MALLINCKRODT-T201403631

PATIENT
  Sex: Female

DRUGS (1)
  1. RESTORIL [Suspect]
     Active Substance: TEMAZEPAM
     Indication: PRODUCT USED FOR UNKNOWN INDICATION
     Dosage: UNK
     Route: 065

REACTIONS (8)
  - Troponin I increased [Unknown]
  - Respiratory failure [None]
  - Toxic encephalopathy [Unknown]
  - Suicide attempt [Unknown]
  - Acute kidney injury [Unknown]
  - Respiratory acidosis [None]
  - Intentional overdose [Unknown]
  - Delirium [Unknown]
